FAERS Safety Report 15621229 (Version 35)
Quarter: 2023Q4

REPORT INFORMATION
  Report Type: Report from Study
  Country: CA (occurrence: CA)
  Receive Date: 20181115
  Receipt Date: 20231129
  Transmission Date: 20240110
  Serious: Yes (Other)
  Sender: FDA-Public Use
  Company Number: PHHY2017CA122661

PATIENT
  Age: 76 Year
  Sex: Male

DRUGS (10)
  1. SANDOSTATIN LAR DEPOT [Suspect]
     Active Substance: OCTREOTIDE ACETATE
     Indication: Carcinoid tumour
     Dosage: 30 MG, Q3W (VIAL)
     Route: 030
     Dates: start: 20170621
  2. SANDOSTATIN LAR DEPOT [Suspect]
     Active Substance: OCTREOTIDE ACETATE
     Dosage: 30 MG, Q4W (EVERY 4 WEEKS)
     Route: 030
     Dates: start: 20180718
  3. SANDOSTATIN LAR DEPOT [Suspect]
     Active Substance: OCTREOTIDE ACETATE
     Dosage: 30 MG, Q3W (EVERY 3 WEEKS)
     Route: 030
     Dates: start: 20180815
  4. SANDOSTATIN [Suspect]
     Active Substance: OCTREOTIDE ACETATE
     Indication: Carcinoid tumour
     Dosage: 160 MG (TEST DOSE)
     Route: 058
     Dates: start: 20170621, end: 20170621
  5. SANDOSTATIN [Suspect]
     Active Substance: OCTREOTIDE ACETATE
  6. SANDOSTATIN [Suspect]
     Active Substance: OCTREOTIDE ACETATE
  7. LUTETIUM LU-177 [Suspect]
     Active Substance: LUTETIUM LU-177
     Indication: Product used for unknown indication
     Dosage: UNK (STARTED ON 12 FEB 2021)
     Route: 065
  8. LUTETIUM LU-177 [Suspect]
     Active Substance: LUTETIUM LU-177
     Dosage: UNK (3RD DOSE)
     Route: 065
     Dates: start: 20210420
  9. DIOVAN [Concomitant]
     Active Substance: VALSARTAN
     Indication: Product used for unknown indication
     Dosage: UNK UNK, QD
     Route: 065
  10. EPREX [Concomitant]
     Active Substance: ERYTHROPOIETIN
     Indication: Red blood cell count decreased
     Dosage: UNK, QW
     Route: 065
     Dates: start: 2023

REACTIONS (33)
  - Type 2 diabetes mellitus [Unknown]
  - Blood pressure increased [Unknown]
  - Nephrolithiasis [Recovered/Resolved]
  - Abdominal pain lower [Recovered/Resolved]
  - Back pain [Recovered/Resolved]
  - Parkinson^s disease [Unknown]
  - Haemoglobin decreased [Unknown]
  - Malignant neoplasm progression [Unknown]
  - Carcinoid tumour [Unknown]
  - Facial pain [Unknown]
  - Excessive cerumen production [Unknown]
  - Pain [Unknown]
  - Blood pressure systolic increased [Unknown]
  - Listless [Unknown]
  - Dizziness [Not Recovered/Not Resolved]
  - Swelling face [Recovering/Resolving]
  - Procedural pain [Unknown]
  - Weight decreased [Unknown]
  - Chills [Recovered/Resolved]
  - Cough [Unknown]
  - Oropharyngeal pain [Unknown]
  - Vomiting [Unknown]
  - Abdominal pain [Unknown]
  - Diarrhoea [Unknown]
  - Fatigue [Unknown]
  - Flatulence [Unknown]
  - Headache [Recovered/Resolved]
  - Constipation [Unknown]
  - Headache [Unknown]
  - Injection site pain [Recovered/Resolved]
  - Injection site swelling [Recovered/Resolved]
  - Injection site pain [Unknown]
  - Inappropriate schedule of product administration [Unknown]

NARRATIVE: CASE EVENT DATE: 20170101
